FAERS Safety Report 6784819-8 (Version None)
Quarter: 2010Q2

REPORT INFORMATION
  Report Type: 
  Country: None (occurrence: None)
  Receive Date: 20100618
  Receipt Date: 20100607
  Transmission Date: 20101027
  Serious: Yes (Other)
  Sender: FDA-Public Use
  Company Number: OSCN-PR-1006S-0154

PATIENT
  Sex: Female

DRUGS (2)
  1. OMNISCAN [Suspect]
     Indication: DRUG USE FOR UNKNOWN INDICATION
     Dosage: SINGLE DOSE; SINGLE DOSE
     Dates: start: 20041029, end: 20041029
  2. OMNISCAN [Suspect]
     Indication: DRUG USE FOR UNKNOWN INDICATION
     Dosage: SINGLE DOSE; SINGLE DOSE
     Dates: start: 20050927, end: 20050927

REACTIONS (1)
  - NEPHROGENIC SYSTEMIC FIBROSIS [None]
